FAERS Safety Report 21132854 (Version 3)
Quarter: 2024Q1

REPORT INFORMATION
  Report Type: Spontaneous
  Country: US (occurrence: US)
  Receive Date: 20220726
  Receipt Date: 20240208
  Transmission Date: 20240410
  Serious: Yes (Hospitalization)
  Sender: FDA-Public Use
  Company Number: US-PFIZER INC-202200990766

PATIENT
  Age: 81 Year
  Sex: Female
  Weight: 65.76 kg

DRUGS (1)
  1. AROMASIN [Suspect]
     Active Substance: EXEMESTANE
     Indication: Breast cancer female
     Dosage: 25 MG, 1X/DAY
     Dates: start: 202311

REACTIONS (4)
  - Muscle disorder [Recovered/Resolved]
  - Bone pain [Unknown]
  - Neoplasm progression [Recovered/Resolved]
  - Intentional product misuse [Unknown]
